FAERS Safety Report 6328479-9 (Version None)
Quarter: 2009Q3

REPORT INFORMATION
  Report Type: 
  Country: None (occurrence: None)
  Receive Date: 20090826
  Receipt Date: 20070503
  Transmission Date: 20100115
  Serious: Yes (Hospitalization, Other)
  Sender: FDA-Public Use
  Company Number: US-ASTRAZENECA-2007UW04547

PATIENT
  Age: 638 Month
  Sex: Female
  Weight: 124.3 kg

DRUGS (13)
  1. SEROQUEL [Suspect]
     Indication: MENTAL DISORDER
     Route: 048
     Dates: start: 19990101, end: 20060901
  2. SEROQUEL [Suspect]
     Route: 048
     Dates: start: 20021122
  3. ABILIFY [Concomitant]
     Dosage: 5 OR 10 MG
     Dates: start: 20040101
  4. GEODON [Concomitant]
     Dosage: 40-60 MG
     Dates: start: 20040101
  5. HALDOL [Concomitant]
     Dates: start: 20010101
  6. RISPERDAL [Concomitant]
     Indication: PSYCHOTIC DISORDER
     Dates: start: 20061101
  7. RISPERDAL [Concomitant]
     Dosage: 2 - 4 MG DAILY
     Dates: start: 20010711
  8. NORVASC [Concomitant]
     Dates: start: 19990901
  9. HYDROCHLOROTHIAZIDE [Concomitant]
     Dates: start: 19990901
  10. ZYRTEC [Concomitant]
     Dates: start: 19990901
  11. COGENTIN [Concomitant]
     Indication: EXTRAPYRAMIDAL DISORDER
     Route: 048
     Dates: start: 20010831
  12. HALOPERIDOL DECANOATE [Concomitant]
     Dosage: STRENGTH - 5 MG, 100 MG AND 150 MG
     Route: 030
     Dates: start: 20010829
  13. BUSPAR [Concomitant]
     Indication: ANXIETY
     Dates: start: 20021122

REACTIONS (6)
  - BREAST MASS [None]
  - DEPRESSION [None]
  - DIABETES MELLITUS [None]
  - DIABETIC KETOACIDOSIS [None]
  - SCHIZOPHRENIA [None]
  - SCHIZOPHRENIA, PARANOID TYPE [None]
